FAERS Safety Report 8358225-9 (Version None)
Quarter: 2012Q2

REPORT INFORMATION
  Report Type: 
  Country: None (occurrence: None)
  Receive Date: 20120514
  Receipt Date: 20120417
  Transmission Date: 20120825
  Serious: Yes (Life-Threatening)
  Sender: FDA-Public Use
  Company Number: JP-GLAXOSMITHKLINE-B0797003A

PATIENT
  Sex: Female

DRUGS (12)
  1. LAMICTAL [Suspect]
     Indication: BIPOLAR DISORDER
     Dosage: 25MG TWICE PER DAY
     Route: 048
     Dates: start: 20111008, end: 20111021
  2. LAMICTAL [Suspect]
     Dosage: 125MG PER DAY
     Route: 048
     Dates: start: 20120204, end: 20120316
  3. LAMICTAL [Suspect]
     Dosage: 100MG PER DAY
     Route: 048
     Dates: start: 20120317
  4. RISPERDAL [Concomitant]
     Dosage: 2MG PER DAY
     Route: 048
  5. DIAZEPAM [Concomitant]
     Dosage: 8MG PER DAY
     Route: 048
  6. LAMICTAL [Suspect]
     Dosage: 50MG PER DAY
     Route: 048
     Dates: start: 20111105, end: 20111125
  7. LAMICTAL [Suspect]
     Dosage: 100MG PER DAY
     Route: 048
     Dates: start: 20111126, end: 20120203
  8. DEPAKENE [Concomitant]
     Indication: BIPOLAR DISORDER
     Dosage: 600MG PER DAY
     Route: 048
  9. LORAZEPAM [Concomitant]
     Indication: BIPOLAR DISORDER
     Dosage: 4MG PER DAY
     Route: 048
  10. SERENAL [Concomitant]
     Dosage: 10MG PER DAY
     Route: 048
  11. LAMICTAL [Suspect]
     Dosage: 25MG PER DAY
     Route: 048
     Dates: start: 20111022, end: 20111104
  12. LITHIUM CARBONATE [Concomitant]
     Indication: BIPOLAR DISORDER
     Dosage: 400MG PER DAY
     Route: 048

REACTIONS (2)
  - ABNORMAL BEHAVIOUR [None]
  - MANIA [None]
